FAERS Safety Report 7086448-8 (Version None)
Quarter: 2010Q4

REPORT INFORMATION
  Report Type: 
  Country: None (occurrence: None)
  Receive Date: 20101028
  Receipt Date: 20101015
  Transmission Date: 20110411
  Serious: Yes (Life-Threatening, Hospitalization, Disabling, Other)
  Sender: FDA-Public Use
  Company Number: DSM-2010-01456

PATIENT
  Age: 79 Year
  Sex: Female
  Weight: 66 kg

DRUGS (1)
  1. OLMESARTAN MEDOXOMIL [Suspect]
     Indication: HYPERTENSION
     Dosage: 20 MG, ORAL
     Route: 048
     Dates: start: 20100917, end: 20100925

REACTIONS (3)
  - ANGINA PECTORIS [None]
  - CARDIAC ARREST [None]
  - MYOCARDIAL INFARCTION [None]
